FAERS Safety Report 23392809 (Version 2)
Quarter: 2024Q1

REPORT INFORMATION
  Report Type: Spontaneous
  Country: US (occurrence: US)
  Receive Date: 20240111
  Receipt Date: 20240115
  Transmission Date: 20240410
  Serious: Yes (Hospitalization, Other)
  Sender: FDA-Public Use
  Company Number: US-ABBVIE-5581886

PATIENT
  Sex: Male

DRUGS (2)
  1. HUMIRA [Suspect]
     Active Substance: ADALIMUMAB
     Indication: Crohn^s disease
     Dosage: START DATE TEXT: PAST 12 YEARS
     Route: 058
  2. HUMIRA [Suspect]
     Active Substance: ADALIMUMAB
     Route: 058
     Dates: start: 202312

REACTIONS (3)
  - Surgery [Unknown]
  - Gastrointestinal pain [Unknown]
  - Gastrointestinal inflammation [Unknown]

NARRATIVE: CASE EVENT DATE: 20230101
